FAERS Safety Report 9481437 (Version 2)
Quarter: 2013Q3

REPORT INFORMATION
  Report Type: Spontaneous
  Country: US (occurrence: US)
  Receive Date: 20130828
  Receipt Date: 20130828
  Transmission Date: 20140515
  Serious: Yes (Other)
  Sender: FDA-Public Use
  Company Number: US-AMGEN-KDL164565

PATIENT
  Age: 41 Year
  Sex: Female

DRUGS (3)
  1. ENBREL [Suspect]
     Indication: RHEUMATOID ARTHRITIS
     Dosage: 50 MG, QWK
     Route: 058
     Dates: start: 20050801, end: 20051201
  2. METHOTREXATE [Concomitant]
     Dosage: 20 MG, QWK
     Dates: start: 200408
  3. REMICADE [Concomitant]

REACTIONS (3)
  - Eye disorder [Unknown]
  - Migraine [Unknown]
  - Headache [Unknown]
